FAERS Safety Report 9350085 (Version 1)
Quarter: 2013Q2

REPORT INFORMATION
  Report Type: Spontaneous
  Country: US (occurrence: US)
  Receive Date: 20130616
  Receipt Date: 20130616
  Transmission Date: 20140414
  Serious: No
  Sender: FDA-Public Use
  Company Number: US-US-EMD SERONO, INC.-7063514

PATIENT
  Age: 30 Year
  Sex: Female
  Weight: 68 kg

DRUGS (2)
  1. REBIF [Suspect]
     Indication: MULTIPLE SCLEROSIS
     Route: 058
     Dates: start: 20100820
  2. REBIF [Suspect]
     Dates: start: 20100901

REACTIONS (3)
  - Vaginal haemorrhage [Unknown]
  - Dry skin [Unknown]
  - Injection site erythema [Unknown]
